FAERS Safety Report 4297556-9 (Version None)
Quarter: 2004Q1

REPORT INFORMATION
  Report Type: 
  Country: None (occurrence: None)
  Receive Date: 20040126
  Receipt Date: 20031031
  Transmission Date: 20041129
  Serious: No
  Sender: FDA-Public Use
  Company Number: USA031151410

PATIENT
  Age: 47 Year
  Sex: Male
  Weight: 95 kg

DRUGS (1)
  1. STRATTERA [Suspect]
     Indication: ATTENTION DEFICIT/HYPERACTIVITY DISORDER
     Dosage: 40 MG/DAY

REACTIONS (5)
  - DISTURBANCE IN ATTENTION [None]
  - DYSURIA [None]
  - FEELING JITTERY [None]
  - INSOMNIA [None]
  - NAUSEA [None]
